FAERS Safety Report 5277607-5 (Version None)
Quarter: 2007Q1

REPORT INFORMATION
  Report Type: 
  Country: None (occurrence: None)
  Receive Date: 20070327
  Receipt Date: 20070312
  Transmission Date: 20070707
  Serious: Yes (Other)
  Sender: FDA-Public Use
  Company Number: US-SANOFI-SYNTHELABO-A03200702147

PATIENT
  Sex: Female

DRUGS (2)
  1. LORCET-HD [Concomitant]
     Dosage: UNK
     Route: 065
  2. AMBIEN [Suspect]
     Dosage: 1 TABLET NOS UNK
     Route: 048
     Dates: start: 20040401

REACTIONS (5)
  - AMNESIA [None]
  - EATING DISORDER [None]
  - SHOPLIFTING [None]
  - SLEEP WALKING [None]
  - WEIGHT INCREASED [None]
